FAERS Safety Report 11403889 (Version 1)
Quarter: 2015Q3

REPORT INFORMATION
  Report Type: Spontaneous
  Country: US (occurrence: US)
  Receive Date: 20150821
  Receipt Date: 20150821
  Transmission Date: 20151125
  Serious: No
  Sender: FDA-Public Use
  Company Number: US-TEVA-521675USA

PATIENT
  Sex: Female

DRUGS (1)
  1. FLUOXETINE [Suspect]
     Active Substance: FLUOXETINE\FLUOXETINE HYDROCHLORIDE
     Indication: PREMENSTRUAL SYNDROME
     Dosage: 10 MILLIGRAM DAILY;

REACTIONS (3)
  - Dizziness [Unknown]
  - Nausea [Unknown]
  - Fatigue [Unknown]
